FAERS Safety Report 6827609-X (Version None)
Quarter: 2010Q3

REPORT INFORMATION
  Report Type: 
  Country: None (occurrence: None)
  Receive Date: 20100709
  Receipt Date: 20070119
  Transmission Date: 20110219
  Serious: No
  Sender: FDA-Public Use
  Company Number: US-PFIZER INC-2007006016

PATIENT
  Sex: Male
  Weight: 88.45 kg

DRUGS (15)
  1. CHANTIX [Suspect]
     Indication: SMOKING CESSATION THERAPY
     Route: 048
     Dates: start: 20060101
  2. FELODIPINE [Suspect]
     Indication: HYPERTENSION
     Route: 048
     Dates: start: 20060101
  3. VYTORIN [Concomitant]
  4. LEVOTHYROXINE SODIUM [Concomitant]
  5. FEXOFENADINE [Concomitant]
  6. NASACORT [Concomitant]
  7. ALL OTHER THERAPEUTIC PRODUCTS [Concomitant]
     Indication: EYE DISORDER
  8. ATIVAN [Concomitant]
  9. MULTI-VITAMINS [Concomitant]
  10. GLUCOSAMINE W/CHONDROITIN SULFATES [Concomitant]
     Indication: KNEE OPERATION
  11. TYLENOL [Concomitant]
     Indication: SURGERY
  12. ADVIL LIQUI-GELS [Concomitant]
     Indication: SURGERY
  13. PROPOXYPHENE HCL AND ACETAMINOPHEN [Concomitant]
     Indication: SURGERY
  14. CARISOPRODOL [Concomitant]
  15. MUSCLE RELAXANTS [Concomitant]

REACTIONS (3)
  - BLOOD PRESSURE INADEQUATELY CONTROLLED [None]
  - DYSGEUSIA [None]
  - MALAISE [None]
